FAERS Safety Report 20390394 (Version 1)
Quarter: 2022Q1

REPORT INFORMATION
  Report Type: Spontaneous
  Country: US (occurrence: US)
  Receive Date: 20220128
  Receipt Date: 20220128
  Transmission Date: 20220424
  Serious: No
  Sender: FDA-Public Use
  Company Number: US-ALLERGAN-2136066US

PATIENT
  Age: 39 Year
  Sex: Female

DRUGS (2)
  1. BOTOX COSMETIC [Suspect]
     Active Substance: ONABOTULINUMTOXINA
     Indication: Skin wrinkling
     Dosage: 24 UNITS, SINGLE
     Dates: start: 20210908, end: 20210908
  2. BOTOX COSMETIC [Suspect]
     Active Substance: ONABOTULINUMTOXINA
     Indication: Skin wrinkling
     Dosage: 16 UNITS, SINGLE
     Dates: start: 20210908, end: 20210908

REACTIONS (6)
  - Product preparation error [Unknown]
  - Wrong technique in product usage process [Unknown]
  - Multiple use of single-use product [Unknown]
  - Product preparation issue [Unknown]
  - Off label use [Unknown]
  - Drug ineffective [Unknown]

NARRATIVE: CASE EVENT DATE: 20210908
